FAERS Safety Report 9524509 (Version 1)
Quarter: 2013Q1

REPORT INFORMATION
  Report Type: Spontaneous
  Country: US (occurrence: None)
  Receive Date: 20130305
  Receipt Date: 20130305
  Transmission Date: 20140127
  Serious: Yes (Hospitalization)
  Sender: FDA-Public Use
  Company Number: 163-21880-12022380

PATIENT
  Age: 46 Year
  Sex: Male

DRUGS (3)
  1. REVLIMID (LENALIDOMIDE) (25 MILLIGRAM, CAPSULES) [Suspect]
     Indication: HODGKIN^S DISEASE
     Route: 048
     Dates: start: 201111
  2. GABAPENTIN (GABAPENTIN) [Concomitant]
  3. MORPHINE [Concomitant]

REACTIONS (2)
  - Pneumonia [None]
  - Febrile neutropenia [None]
